FAERS Safety Report 25233698 (Version 1)
Quarter: 2025Q2

REPORT INFORMATION
  Report Type: Spontaneous
  Country: DE (occurrence: DE)
  Receive Date: 20250424
  Receipt Date: 20250424
  Transmission Date: 20250717
  Serious: Yes (Other)
  Sender: HETERO
  Company Number: DE-ASTELLAS-2025-AER-019707

PATIENT
  Age: 80 Year
  Sex: Female
  Weight: 55 kg

DRUGS (5)
  1. DULOXETINE [Suspect]
     Active Substance: DULOXETINE
     Indication: Polyneuropathy
     Route: 065
  2. ENFORTUMAB VEDOTIN [Suspect]
     Active Substance: ENFORTUMAB VEDOTIN
     Indication: Transitional cell carcinoma metastatic
     Route: 065
     Dates: start: 202401
  3. ENFORTUMAB VEDOTIN [Suspect]
     Active Substance: ENFORTUMAB VEDOTIN
     Route: 065
  4. ENFORTUMAB VEDOTIN [Suspect]
     Active Substance: ENFORTUMAB VEDOTIN
     Route: 065
  5. PEMBROLIZUMAB [Suspect]
     Active Substance: PEMBROLIZUMAB
     Indication: Transitional cell carcinoma metastatic
     Route: 065
     Dates: start: 202401

REACTIONS (4)
  - Polyneuropathy [Recovering/Resolving]
  - Alopecia [Unknown]
  - Dry eye [Unknown]
  - Rash [Unknown]

NARRATIVE: CASE EVENT DATE: 20240101
